FAERS Safety Report 12699375 (Version 1)
Quarter: 2016Q3

REPORT INFORMATION
  Report Type: Spontaneous
  Country: FR (occurrence: FR)
  Receive Date: 20160830
  Receipt Date: 20160830
  Transmission Date: 20161109
  Serious: Yes (Hospitalization)
  Sender: FDA-Public Use
  Company Number: FR-PFIZER INC-2016399185

PATIENT
  Age: 17 Year
  Sex: Female

DRUGS (5)
  1. XANAX [Suspect]
     Active Substance: ALPRAZOLAM
     Dosage: UNK
     Dates: start: 2015
  2. SUBUTEX [Suspect]
     Active Substance: BUPRENORPHINE HYDROCHLORIDE
     Dosage: UNK
     Dates: start: 2015
  3. KETAMINE [Suspect]
     Active Substance: KETAMINE
     Dosage: UNK
     Dates: start: 2015
  4. TERCIAN [Suspect]
     Active Substance: CYAMEMAZINE
     Dosage: UNK
     Dates: start: 2015
  5. SERESTA [Suspect]
     Active Substance: OXAZEPAM
     Dosage: UNK
     Dates: start: 2015

REACTIONS (3)
  - Substance abuser [Not Recovered/Not Resolved]
  - Vomiting [Recovered/Resolved]
  - Malaise [Recovered/Resolved]

NARRATIVE: CASE EVENT DATE: 2015
